FAERS Safety Report 7296185-2 (Version None)
Quarter: 2011Q1

REPORT INFORMATION
  Report Type: 
  Country: None (occurrence: None)
  Receive Date: 20110216
  Receipt Date: 20110209
  Transmission Date: 20110831
  Serious: Yes (Other)
  Sender: FDA-Public Use
  Company Number: GB-PFIZER INC-2010152923

PATIENT
  Age: 20 Year
  Sex: Female

DRUGS (2)
  1. DEPO-PROVERA [Suspect]
     Indication: CONTRACEPTION
     Dosage: 150 MG/ML, UNK
     Route: 030
     Dates: start: 20100311
  2. LEVOTHYROXINE [Concomitant]
     Indication: HYPOTHYROIDISM
     Dosage: 50 UG, 1X/DAY

REACTIONS (6)
  - MALAISE [None]
  - INJECTION SITE PAIN [None]
  - DIZZINESS [None]
  - TREMOR [None]
  - SENSORY LOSS [None]
  - PAIN IN EXTREMITY [None]
